FAERS Safety Report 24895632 (Version 2)
Quarter: 2025Q1

REPORT INFORMATION
  Report Type: Spontaneous
  Country: FR (occurrence: FR)
  Receive Date: 20250128
  Receipt Date: 20250225
  Transmission Date: 20250409
  Serious: Yes (Other)
  Sender: GLAXOSMITHKLINE
  Company Number: FR-GSKCCFEMEA-Case-02191636_AE-92884

PATIENT

DRUGS (2)
  1. ZEJULA [Suspect]
     Active Substance: NIRAPARIB
     Indication: Ovarian cancer
     Dosage: 3 DF, QD
  2. ZEJULA [Suspect]
     Active Substance: NIRAPARIB
     Dosage: 2 DF, QD

REACTIONS (6)
  - Pancytopenia [Not Recovered/Not Resolved]
  - Decreased immune responsiveness [Unknown]
  - Gait inability [Unknown]
  - Hypersomnia [Unknown]
  - Psychomotor skills impaired [Unknown]
  - Asthenia [Unknown]
